FAERS Safety Report 6428542-8 (Version None)
Quarter: 2009Q4

REPORT INFORMATION
  Report Type: 
  Country: None (occurrence: None)
  Receive Date: 20091105
  Receipt Date: 20091027
  Transmission Date: 20100525
  Serious: Yes (Other)
  Sender: FDA-Public Use
  Company Number: GXKR2009CH11754

PATIENT
  Sex: Female

DRUGS (2)
  1. LAMOTRIGINE (NGX) [Suspect]
     Indication: EPILEPSY
     Route: 065
  2. CODEINE PHOSPHATE (NGX) [Interacting]
     Indication: ANTITUSSIVE THERAPY
     Route: 065

REACTIONS (6)
  - ATAXIA [None]
  - DEPRESSED LEVEL OF CONSCIOUSNESS [None]
  - DIZZINESS [None]
  - DRUG INTERACTION [None]
  - NEUROTOXICITY [None]
  - VISION BLURRED [None]
